FAERS Safety Report 15722845 (Version 1)
Quarter: 2018Q4

REPORT INFORMATION
  Report Type: Spontaneous
  Country: US (occurrence: US)
  Receive Date: 20181214
  Receipt Date: 20181214
  Transmission Date: 20190205
  Serious: Yes (Other)
  Sender: FDA-Public Use
  Company Number: None

PATIENT
  Age: 50 Year
  Sex: Male
  Weight: 117.9 kg

DRUGS (1)
  1. IDELVION [Suspect]
     Active Substance: COAGULATION FACTOR IX RECOMBINANT HUMAN
     Indication: HAEMOPHILIA
     Dosage: ?          OTHER FREQUENCY:WEEKLY;?
     Route: 042
     Dates: start: 20181115, end: 20181203

REACTIONS (1)
  - Urticaria [None]

NARRATIVE: CASE EVENT DATE: 20181203
